FAERS Safety Report 19856039 (Version 1)
Quarter: 2021Q3

REPORT INFORMATION
  Report Type: Spontaneous
  Country: US (occurrence: US)
  Receive Date: 20210917
  Receipt Date: 20210917
  Transmission Date: 20211014
  Serious: Yes (Hospitalization)
  Sender: FDA-Public Use
  Company Number: None

PATIENT
  Sex: Male

DRUGS (1)
  1. DROXIDOPA 200MG ZYDUS PHARMACEUTICALS(USA) [Suspect]
     Active Substance: DROXIDOPA
     Indication: ORTHOSTATIC HYPOTENSION
     Route: 048
     Dates: start: 202004

REACTIONS (4)
  - Insurance issue [None]
  - Hypotension [None]
  - Loss of consciousness [None]
  - Therapy interrupted [None]
